FAERS Safety Report 5405966-9 (Version None)
Quarter: 2007Q3

REPORT INFORMATION
  Report Type: 
  Country: None (occurrence: None)
  Receive Date: 20070806
  Receipt Date: 20070726
  Transmission Date: 20080115
  Serious: Yes (Other)
  Sender: FDA-Public Use
  Company Number: GB-AMGEN-US158630

PATIENT
  Sex: Female
  Weight: 50.5 kg

DRUGS (16)
  1. ENBREL [Suspect]
     Indication: RHEUMATOID ARTHRITIS
     Route: 058
     Dates: start: 20040917, end: 20051115
  2. TEMAZEPAM [Concomitant]
     Indication: PAIN
     Dosage: 20MG NIGHTLY
     Route: 048
  3. ISONIAZID [Concomitant]
     Indication: ANTIBIOTIC PROPHYLAXIS
     Dosage: 300MG ONCE DAILUY
     Route: 048
  4. RAMIPRIL [Concomitant]
     Dosage: 5MG
     Route: 048
  5. ALENDRONATE SODIUM [Concomitant]
     Dosage: 70MG WEEKLY
     Route: 065
  6. CITALOPRAM HYDROBROMIDE [Concomitant]
     Dosage: 10MG ONCE NIGHTLY
     Route: 048
  7. SIMVASTATIN [Concomitant]
     Dosage: 40MG NIGHTLY
     Route: 048
  8. BECLOMETHASONE DIPROPIONATE [Concomitant]
     Dosage: TWO TWICE DAILY
     Route: 055
  9. MIRTAZAPINE [Concomitant]
     Dosage: 30MG AT NIGHT
     Route: 065
  10. BISOPROLOL FUMARATE [Concomitant]
     Dosage: 7.5 MG DAILY
     Route: 065
  11. FUROSEMIDE [Concomitant]
     Dosage: 80MG DAILY
     Route: 065
  12. ASPIRIN [Concomitant]
     Dosage: 75MG DAILY
     Route: 065
  13. PREDNISOLONE [Concomitant]
     Indication: RHEUMATOID ARTHRITIS
     Dosage: 10MG DAILY
     Route: 065
  14. FERROUS SULFATE [Concomitant]
     Indication: ANAEMIA
     Dosage: 200MG DAILY
     Route: 065
  15. ACETAMINOPHEN [Concomitant]
     Indication: PAIN
     Dosage: 1 GRAM FOUR TIMES A DAY
     Route: 065
  16. ORAMORPH SR [Concomitant]
     Indication: PAIN
     Dosage: 10MG/5ML AS NEEDED
     Route: 048

REACTIONS (2)
  - INFECTION [None]
  - VASCULITIS [None]
